FAERS Safety Report 18494307 (Version 1)
Quarter: 2020Q4

REPORT INFORMATION
  Report Type: Spontaneous
  Country: GB (occurrence: GB)
  Receive Date: 20201112
  Receipt Date: 20201112
  Transmission Date: 20210114
  Serious: Yes (Hospitalization)
  Sender: FDA-Public Use
  Company Number: GB-TEVA-2020-GB-1847163

PATIENT
  Age: 51 Year
  Sex: Male

DRUGS (12)
  1. SERTRALINE [Concomitant]
     Active Substance: SERTRALINE HYDROCHLORIDE
  2. NOVOMIX [Concomitant]
     Active Substance: INSULIN ASPART
  3. PREDNISOLONE. [Concomitant]
     Active Substance: PREDNISOLONE
  4. DULAGLUTIDE. [Concomitant]
     Active Substance: DULAGLUTIDE
  5. EZETIMIBE. [Concomitant]
     Active Substance: EZETIMIBE
  6. FAMOTIDINE. [Concomitant]
     Active Substance: FAMOTIDINE
  7. DIGOXIN. [Concomitant]
     Active Substance: DIGOXIN
  8. RAMIPRIL. [Concomitant]
     Active Substance: RAMIPRIL
  9. AMIODARONE [Suspect]
     Active Substance: AMIODARONE
     Indication: ATRIAL FIBRILLATION
     Dosage: LOADING REGIME
     Route: 048
  10. APIXABAN [Concomitant]
     Active Substance: APIXABAN
  11. BISOPROLOL FUMARATE. [Concomitant]
     Active Substance: BISOPROLOL FUMARATE
  12. COLECALCIFEROL [Concomitant]
     Active Substance: CHOLECALCIFEROL

REACTIONS (1)
  - Thyroiditis acute [Not Recovered/Not Resolved]
